FAERS Safety Report 8042039-3 (Version None)
Quarter: 2012Q1

REPORT INFORMATION
  Report Type: 
  Country: None (occurrence: None)
  Receive Date: 20120112
  Receipt Date: 20120110
  Transmission Date: 20120608
  Serious: Yes (Other)
  Sender: FDA-Public Use
  Company Number: US-BAYER-2012-003238

PATIENT
  Sex: Female

DRUGS (1)
  1. MIRENA [Suspect]
     Dosage: 20 MCG/24HR, CONT
     Dates: start: 20111115

REACTIONS (7)
  - DEVICE DISLOCATION [None]
  - MENSTRUATION IRREGULAR [None]
  - ABDOMINAL PAIN UPPER [None]
  - ABDOMINAL PAIN [None]
  - UNEVALUABLE EVENT [None]
  - PULMONARY HYPERTENSION [None]
  - PATIENT-DEVICE INCOMPATIBILITY [None]
